FAERS Safety Report 13486855 (Version 4)
Quarter: 2017Q3

REPORT INFORMATION
  Report Type: Report from Study
  Country: CA (occurrence: CA)
  Receive Date: 20170426
  Receipt Date: 20170807
  Transmission Date: 20171127
  Serious: Yes (Hospitalization, Other)
  Sender: FDA-Public Use
  Company Number: PHHY2016CA069551

PATIENT
  Age: 63 Year
  Sex: Female

DRUGS (6)
  1. SANDOSTATIN LAR DEPOT [Suspect]
     Active Substance: OCTREOTIDE ACETATE
     Dosage: 30 MG, QMO (EVERY 4 WEEKS)
     Route: 030
     Dates: start: 20160712
  2. NEUPOGEN [Concomitant]
     Active Substance: FILGRASTIM
     Indication: PRODUCT USED FOR UNKNOWN INDICATION
     Dosage: UNK
     Route: 065
  3. CALCIUM [Concomitant]
     Active Substance: CALCIUM
     Indication: PRODUCT USED FOR UNKNOWN INDICATION
     Dosage: UNK
     Route: 065
  4. SANDOSTATIN LAR DEPOT [Suspect]
     Active Substance: OCTREOTIDE ACETATE
     Indication: CARCINOID SYNDROME
     Dosage: 20 MG, QMO (EVERY 4 WEEKS)
     Route: 030
     Dates: start: 20160223, end: 20160614
  5. MAGNESIUM [Concomitant]
     Active Substance: MAGNESIUM
     Indication: PRODUCT USED FOR UNKNOWN INDICATION
     Dosage: UNK
     Route: 065
  6. INNOHEP [Concomitant]
     Active Substance: TINZAPARIN SODIUM
     Indication: PRODUCT USED FOR UNKNOWN INDICATION
     Dosage: UNK UNK, QD
     Route: 065

REACTIONS (27)
  - Hernia [Unknown]
  - Poor quality sleep [Unknown]
  - Hypotension [Unknown]
  - Hernia pain [Unknown]
  - Mouth ulceration [Unknown]
  - Inguinal hernia [Unknown]
  - Headache [Unknown]
  - Muscle spasms [Unknown]
  - Dizziness [Unknown]
  - Renal pain [Unknown]
  - Jaundice [Unknown]
  - Urinary tract obstruction [Unknown]
  - Asthenia [Unknown]
  - Blood pressure systolic decreased [Unknown]
  - Injection site haemorrhage [Unknown]
  - Heart rate decreased [Unknown]
  - Dyspnoea [Unknown]
  - Needle issue [Unknown]
  - Vertigo [Unknown]
  - Body temperature increased [Unknown]
  - Decreased appetite [Unknown]
  - Vaginal haemorrhage [Unknown]
  - Stoma site pain [Unknown]
  - Infection [Unknown]
  - Gait disturbance [Unknown]
  - Eating disorder [Unknown]
  - Vomiting [Unknown]

NARRATIVE: CASE EVENT DATE: 2016
